FAERS Safety Report 10600126 (Version 4)
Quarter: 2020Q3

REPORT INFORMATION
  Report Type: Spontaneous
  Country: DE (occurrence: DE)
  Receive Date: 20141122
  Receipt Date: 20200713
  Transmission Date: 20201102
  Serious: Yes (Death, Congenital Anomaly, Other)
  Sender: FDA-Public Use
  Company Number: DE-DRREDDYS-GER/GER/14/0044480

PATIENT
  Age: 1 Day
  Sex: Male
  Weight: 2.34 kg

DRUGS (13)
  1. L?THYROXIN 25 HENNING [Concomitant]
     Indication: PRODUCT USED FOR UNKNOWN INDICATION
     Dosage: DAILY DOSE: 25 MICROGRAM(S) EVERY DAY
     Route: 064
     Dates: start: 20130702, end: 20140114
  2. DAS GESUNDE PLUS?FOLSAURE 600 [Concomitant]
     Indication: PRODUCT USED FOR UNKNOWN INDICATION
     Dosage: DAILY DOSE: 0.6 MG MILLIGRAM(S) EVERY DAY
     Route: 064
     Dates: start: 20130702, end: 20131217
  3. BELOC?ZOK MITE [Concomitant]
     Active Substance: METOPROLOL SUCCINATE
     Indication: PRODUCT USED FOR UNKNOWN INDICATION
     Dosage: 70.75 (MG/D (47.5?0?23.75) SINCE WHEN?PROBABLY THERAPY STARTED EARLIER
     Route: 064
     Dates: start: 20140114, end: 20140114
  4. BETAMETHASONE. [Concomitant]
     Active Substance: BETAMETHASONE
     Indication: PRODUCT USED FOR UNKNOWN INDICATION
     Dosage: IN WEEK 25 AND 3, 25 AND 4 AND AGAIN IN WEEK 28 AND 0
     Route: 064
  5. ADALAT [Concomitant]
     Active Substance: NIFEDIPINE
     Indication: PRODUCT USED FOR UNKNOWN INDICATION
     Route: 064
  6. AMLODIPINE [Concomitant]
     Active Substance: AMLODIPINE BESYLATE
     Indication: PRODUCT USED FOR UNKNOWN INDICATION
     Dosage: 7.5 MILLIGRAM DAILY; 7.5 (MG/D (2.5?0?5)
     Route: 064
  7. PROGRAF [Suspect]
     Active Substance: TACROLIMUS
     Indication: PRODUCT USED FOR UNKNOWN INDICATION
     Dosage: 5.5 MILLIGRAM DAILY; 5.5 MG/D (3?0?2.5 MG/D) / MOTHER SINCE 2007
     Route: 064
     Dates: start: 20130702, end: 20140114
  8. METHYLDOPA. [Suspect]
     Active Substance: METHYLDOPA
     Indication: PRODUCT USED FOR UNKNOWN INDICATION
     Dosage: DAILY DOSE: 500 MG MILLIGRAM(S) EVERY DAY
     Route: 064
     Dates: start: 20130702, end: 20140114
  9. AMPICILLIN [Concomitant]
     Active Substance: AMPICILLIN
     Indication: PRODUCT USED FOR UNKNOWN INDICATION
     Route: 064
     Dates: start: 20140114, end: 20140114
  10. PARTUSISTEN [Concomitant]
     Active Substance: FENOTEROL
     Indication: PRODUCT USED FOR UNKNOWN INDICATION
     Route: 064
     Dates: start: 20140114, end: 20140114
  11. METOPROLOL. [Suspect]
     Active Substance: METOPROLOL
     Indication: PRODUCT USED FOR UNKNOWN INDICATION
     Dosage: 142.5 (MG/D (95?0?47.5) SINCE 2012. THERAPY PROBABLY ONGOING OR CHANGED TO BELOC ZOK MITE
     Route: 064
     Dates: start: 20130702, end: 20131217
  12. DEKRISTOL [Concomitant]
     Active Substance: CHOLECALCIFEROL
     Indication: PRODUCT USED FOR UNKNOWN INDICATION
     Route: 064
     Dates: start: 20130702, end: 20131217
  13. AZATHIOPRINE. [Suspect]
     Active Substance: AZATHIOPRINE
     Indication: PRODUCT USED FOR UNKNOWN INDICATION
     Dosage: DAILY DOSE:100 MG MILLIGRAM(S) EVERY DAY
     Route: 064
     Dates: start: 20130702, end: 20140114

REACTIONS (9)
  - Death neonatal [Fatal]
  - Polyhydramnios [Fatal]
  - Hydrops foetalis [Fatal]
  - Premature baby [Unknown]
  - Low birth weight baby [Unknown]
  - Foetal exposure during pregnancy [Unknown]
  - Large for dates baby [Unknown]
  - Congenital cystic lung [Fatal]
  - Neonatal respiratory failure [Fatal]

NARRATIVE: CASE EVENT DATE: 20130702
